FAERS Safety Report 12634824 (Version 1)
Quarter: 2016Q3

REPORT INFORMATION
  Report Type: Spontaneous
  Country: US (occurrence: US)
  Receive Date: 20160808
  Receipt Date: 20160808
  Transmission Date: 20161109
  Serious: Yes (Other)
  Sender: FDA-Public Use
  Company Number: US-SA-2016SA144386

PATIENT
  Sex: Female

DRUGS (1)
  1. PLAVIX [Suspect]
     Active Substance: CLOPIDOGREL BISULFATE
     Route: 065
     Dates: start: 201606

REACTIONS (7)
  - Chest pain [Unknown]
  - Myalgia [Unknown]
  - Arrhythmia [Unknown]
  - Arthralgia [Unknown]
  - Peripheral swelling [Unknown]
  - Mobility decreased [Unknown]
  - Urticaria [Unknown]
